FAERS Safety Report 21156328 (Version 1)
Quarter: 2022Q3

REPORT INFORMATION
  Report Type: Spontaneous
  Country: TR (occurrence: TR)
  Receive Date: 20220801
  Receipt Date: 20220801
  Transmission Date: 20221027
  Serious: No
  Sender: FDA-Public Use
  Company Number: TR-PADAGIS-2022PAD00156

PATIENT

DRUGS (2)
  1. IMIQUIMOD [Suspect]
     Active Substance: IMIQUIMOD
     Indication: Squamous cell carcinoma
     Dosage: ONCE DAILY FOR 5 DAYS A WEEK
     Route: 061
  2. IMIQUIMOD [Suspect]
     Active Substance: IMIQUIMOD
     Indication: Actinic keratosis

REACTIONS (3)
  - Hyperkeratosis [None]
  - Condition aggravated [None]
  - Off label use [Unknown]
